FAERS Safety Report 12640293 (Version 1)
Quarter: 2016Q3

REPORT INFORMATION
  Report Type: Spontaneous
  Country: US (occurrence: US)
  Receive Date: 20160810
  Receipt Date: 20160810
  Transmission Date: 20161109
  Serious: Yes (Other)
  Sender: FDA-Public Use
  Company Number: US-STRIDES ARCOLAB LIMITED-2016SP011569

PATIENT

DRUGS (2)
  1. MYCOPHENOLATE MOFETIL. [Suspect]
     Active Substance: MYCOPHENOLATE MOFETIL
     Indication: MORPHOEA
     Dosage: 500 MG, BID (850 MG/M2/DAY)
  2. METHOTREXATE. [Suspect]
     Active Substance: METHOTREXATE
     Indication: MORPHOEA
     Dosage: 15 MG, ONCE A WEEK

REACTIONS (3)
  - Anhedonia [Recovered/Resolved]
  - Mood altered [Recovered/Resolved]
  - Off label use [Unknown]
